FAERS Safety Report 23171867 (Version 2)
Quarter: 2023Q4

REPORT INFORMATION
  Report Type: Other
  Country: CN (occurrence: None)
  Receive Date: 20231110
  Receipt Date: 20231116
  Transmission Date: 20240109
  Serious: Yes (Other)
  Sender: FDA-Public Use
  Company Number: CN-ROCHE-3454325

PATIENT
  Age: 55 Year
  Sex: Male

DRUGS (2)
  1. ATEZOLIZUMAB [Suspect]
     Active Substance: ATEZOLIZUMAB
     Indication: Small cell lung cancer
     Route: 065
  2. CATEQUENTINIB [Suspect]
     Active Substance: CATEQUENTINIB
     Indication: Small cell lung cancer
     Dosage: FOR 14 CONSECUTIVE DAYS, REPEATED EVERY 3 WEEKS
     Route: 048

REACTIONS (1)
  - Disease progression [Unknown]
